FAERS Safety Report 23499148 (Version 2)
Quarter: 2024Q3

REPORT INFORMATION
  Report Type: Spontaneous
  Country: US (occurrence: US)
  Receive Date: 20240208
  Receipt Date: 20240826
  Transmission Date: 20241017
  Serious: No
  Sender: ROCHE
  Company Number: US-ROCHE-3466445

PATIENT
  Age: 77 Year
  Sex: Male

DRUGS (5)
  1. SUSVIMO [Suspect]
     Active Substance: RANIBIZUMAB
     Indication: Neovascular age-related macular degeneration
     Dosage: ON 14/FEB/2022, IMPLANT WAS INSERTED. REFILL DATE WAS AUG/2022.
     Route: 050
     Dates: start: 202201
  2. SUSVIMO [Suspect]
     Active Substance: RANIBIZUMAB
  3. SUSVIMO [Suspect]
     Active Substance: RANIBIZUMAB
  4. SUSVIMO [Suspect]
     Active Substance: RANIBIZUMAB
  5. SUSVIMO [Suspect]
     Active Substance: RANIBIZUMAB

REACTIONS (2)
  - Drug ineffective [Unknown]
  - Eye disorder [Not Recovered/Not Resolved]
